FAERS Safety Report 10032850 (Version 2)
Quarter: 2014Q2

REPORT INFORMATION
  Report Type: Spontaneous
  Country: US (occurrence: US)
  Receive Date: 20140324
  Receipt Date: 20140508
  Transmission Date: 20141212
  Serious: Yes (Hospitalization, Other)
  Sender: FDA-Public Use
  Company Number: US-PFIZER INC-2014082557

PATIENT
  Age: 50 Year
  Sex: Female
  Weight: 79.82 kg

DRUGS (7)
  1. EFFEXOR XR [Suspect]
     Indication: DEPRESSION
     Dosage: UNK
     Route: 048
  2. EFFEXOR XR [Suspect]
     Dosage: 75 MG, 2X/DAY
     Route: 048
  3. LIPITOR [Concomitant]
     Dosage: 10 MG, 1X/DAY
     Route: 048
  4. BRILINTA [Concomitant]
     Dosage: 90 MG, 2X/DAY
     Route: 048
  5. ASPIRIN [Concomitant]
     Dosage: 81 MG, 1X/DAY
     Route: 048
  6. METOPROLOL TARTRATE [Concomitant]
     Dosage: UNK
     Route: 048
  7. EFFEXOR [Concomitant]
     Dosage: 75 MG, 2X/DAY
     Route: 048

REACTIONS (6)
  - Myocardial infarction [Unknown]
  - Chest pain [Recovered/Resolved]
  - Abdominal pain upper [Recovered/Resolved]
  - Gastrinoma [Unknown]
  - Throat irritation [Not Recovered/Not Resolved]
  - Vomiting [Unknown]
